FAERS Safety Report 9211514 (Version 1)
Quarter: 2013Q2

REPORT INFORMATION
  Report Type: Spontaneous
  Country: US (occurrence: US)
  Receive Date: 20130404
  Receipt Date: 20130404
  Transmission Date: 20140414
  Serious: No
  Sender: FDA-Public Use
  Company Number: US-AMGEN-USASP2013017174

PATIENT
  Age: 59 Year
  Sex: Male
  Weight: 111.11 kg

DRUGS (5)
  1. ENBREL [Suspect]
     Indication: RHEUMATOID ARTHRITIS
     Dosage: UNK UNK, QWK
     Dates: start: 2012, end: 201206
  2. HUMIRA [Concomitant]
     Dosage: UNK
     Dates: start: 201206, end: 2012
  3. METHOTREXATE [Concomitant]
     Dosage: 2.5 MG, 3 TIMES/WK (HREE TIMES A)
  4. DAYPRO [Concomitant]
     Indication: GOUT
     Dosage: 1200 MG, QD
  5. ALLOPURINOL [Concomitant]
     Indication: GOUT
     Dosage: UNK

REACTIONS (5)
  - Hepatic enzyme abnormal [Not Recovered/Not Resolved]
  - Inappropriate schedule of drug administration [Unknown]
  - Drug ineffective [Unknown]
  - Herpes zoster [Not Recovered/Not Resolved]
  - Psoriasis [Not Recovered/Not Resolved]
